FAERS Safety Report 20363775 (Version 1)
Quarter: 2022Q1

REPORT INFORMATION
  Report Type: Spontaneous
  Country: US (occurrence: US)
  Receive Date: 20220121
  Receipt Date: 20220121
  Transmission Date: 20220424
  Serious: Yes (Hospitalization, Other)
  Sender: FDA-Public Use
  Company Number: US-LUPIN PHARMACEUTICALS INC.-2022-00555

PATIENT
  Age: 55 Year
  Sex: Male

DRUGS (21)
  1. VORICONAZOLE [Suspect]
     Active Substance: VORICONAZOLE
     Indication: Antifungal prophylaxis
     Dosage: 200 MILLIGRAM
     Route: 065
  2. METHYLPREDNISOLONE [Suspect]
     Active Substance: METHYLPREDNISOLONE
     Indication: Diffuse large B-cell lymphoma recurrent
     Dosage: UNK, (AS REPORTED; R-ESHAP)
     Route: 065
     Dates: start: 201004
  3. METHYLPREDNISOLONE [Suspect]
     Active Substance: METHYLPREDNISOLONE
     Indication: Diffuse large B-cell lymphoma recurrent
  4. RITUXIMAB [Suspect]
     Active Substance: RITUXIMAB
     Indication: Diffuse large B-cell lymphoma
     Dosage: UNK, (AS REPORTED; R-ESHAP)
     Route: 065
     Dates: start: 200908
  5. RITUXIMAB [Suspect]
     Active Substance: RITUXIMAB
     Indication: Diffuse large B-cell lymphoma recurrent
     Dosage: UNK, (AS REPORTED; R-ESHAP)
     Route: 065
     Dates: start: 201004
  6. CYCLOPHOSPHAMIDE [Suspect]
     Active Substance: CYCLOPHOSPHAMIDE
     Indication: Diffuse large B-cell lymphoma
     Dosage: UNK, (AS REPORTED; R-ESHAP)
     Route: 065
     Dates: start: 200908
  7. DOXORUBICIN [Suspect]
     Active Substance: DOXORUBICIN
     Indication: Diffuse large B-cell lymphoma
     Dosage: UNK, (AS REPORTED; R-ESHAP)
     Route: 065
     Dates: start: 200908
  8. VINCRISTINE [Suspect]
     Active Substance: VINCRISTINE
     Indication: Diffuse large B-cell lymphoma
     Dosage: UNK, (AS REPORTED; R-ESHAP)
     Route: 065
     Dates: start: 200908
  9. PREDNISONE [Suspect]
     Active Substance: PREDNISONE
     Indication: Diffuse large B-cell lymphoma
     Dosage: UNK, (AS REPORTED; R-ESHAP)
     Route: 065
     Dates: start: 200908
  10. ETOPOSIDE [Suspect]
     Active Substance: ETOPOSIDE
     Indication: Diffuse large B-cell lymphoma recurrent
     Dosage: UNK, R-ESHAP
     Route: 065
     Dates: start: 201004
  11. ETOPOSIDE [Suspect]
     Active Substance: ETOPOSIDE
     Indication: Autologous bone marrow transplantation therapy
     Dosage: UNK, BEAM THERAPY
     Route: 065
     Dates: start: 201007
  12. ETOPOSIDE [Suspect]
     Active Substance: ETOPOSIDE
     Indication: Diffuse large B-cell lymphoma
  13. CYTARABINE [Suspect]
     Active Substance: CYTARABINE
     Indication: Diffuse large B-cell lymphoma recurrent
     Dosage: UNK, R-ESHAP (HIGH DOSE)
     Route: 065
     Dates: start: 201004
  14. CYTARABINE [Suspect]
     Active Substance: CYTARABINE
     Dosage: UNK, BEAM THERAPY
     Route: 065
     Dates: start: 201007
  15. CISPLATIN [Suspect]
     Active Substance: CISPLATIN
     Indication: Diffuse large B-cell lymphoma recurrent
     Dosage: UNK, (AS REPORTED; R-ESHAP)
     Route: 065
     Dates: start: 201004
  16. MELPHALAN [Concomitant]
     Active Substance: MELPHALAN
     Indication: Autologous bone marrow transplantation therapy
     Dosage: UNK
     Route: 065
     Dates: start: 201007
  17. AZACITIDINE [Concomitant]
     Active Substance: AZACITIDINE
     Indication: Myelodysplastic syndrome
     Dosage: UNK
     Route: 065
     Dates: start: 201507
  18. MYCOPHENOLATE MOFETIL [Concomitant]
     Active Substance: MYCOPHENOLATE MOFETIL
     Indication: Prophylaxis against graft versus host disease
     Dosage: UNK
     Route: 065
     Dates: start: 2016
  19. MYCOPHENOLATE MOFETIL [Concomitant]
     Active Substance: MYCOPHENOLATE MOFETIL
     Indication: Immunosuppressant drug therapy
  20. ATOVAQUONE [Concomitant]
     Active Substance: ATOVAQUONE
     Indication: Infection prophylaxis
     Dosage: 1500 MILLIGRAM, QD
     Route: 065
  21. VALACYCLOVIR [Concomitant]
     Active Substance: VALACYCLOVIR HYDROCHLORIDE
     Indication: Infection prophylaxis
     Dosage: 500 MILLIGRAM, QD
     Route: 065

REACTIONS (2)
  - Histoplasmosis [Recovered/Resolved]
  - Pathogen resistance [Unknown]
